FAERS Safety Report 15941743 (Version 1)
Quarter: 2019Q1

REPORT INFORMATION
  Report Type: Spontaneous
  Country: US (occurrence: US)
  Receive Date: 20190210
  Receipt Date: 20190210
  Transmission Date: 20190417
  Serious: Yes (Other)
  Sender: FDA-Public Use
  Company Number: None

PATIENT
  Age: 65 Year
  Sex: Male
  Weight: 78.75 kg

DRUGS (3)
  1. VALACYCLOVIR [Suspect]
     Active Substance: VALACYCLOVIR HYDROCHLORIDE
     Indication: OPHTHALMIC HERPES SIMPLEX
     Route: 048
     Dates: start: 20181228, end: 20190123
  2. CELEBREX [Concomitant]
     Active Substance: CELECOXIB
     Dates: start: 20181201
  3. CITALOPRAM [Concomitant]
     Active Substance: CITALOPRAM HYDROBROMIDE
     Dates: start: 20181201

REACTIONS (3)
  - Product substitution issue [None]
  - Ophthalmic herpes simplex [None]
  - Eye pain [None]

NARRATIVE: CASE EVENT DATE: 20190131
